FAERS Safety Report 17199545 (Version 1)
Quarter: 2019Q4

REPORT INFORMATION
  Report Type: Spontaneous
  Country: US (occurrence: US)
  Receive Date: 20191226
  Receipt Date: 20191226
  Transmission Date: 20200122
  Serious: No
  Sender: FDA-Public Use
  Company Number: US-ELI_LILLY_AND_COMPANY-US201911014032

PATIENT
  Age: 53 Year
  Sex: Male

DRUGS (3)
  1. HUMULIN R [Suspect]
     Active Substance: INSULIN HUMAN
     Indication: PRODUCT USED FOR UNKNOWN INDICATION
     Dosage: UNK UNK, UNKNOWN (EARLY 2000^S)
     Route: 065
     Dates: start: 2000
  2. HUMALOG [Suspect]
     Active Substance: INSULIN LISPRO
     Indication: PRODUCT USED FOR UNKNOWN INDICATION
     Dosage: UNK UNK, PRN (2014 AND 2015)
     Route: 065
     Dates: start: 2014
  3. HUMULIN N [Suspect]
     Active Substance: INSULIN HUMAN
     Indication: PRODUCT USED FOR UNKNOWN INDICATION
     Dosage: UNK UNK, UNKNOWN (EARLY 2000)
     Route: 065
     Dates: start: 2000

REACTIONS (4)
  - Blood glucose increased [Recovered/Resolved]
  - Hypoglycaemia unawareness [Unknown]
  - Hypoglycaemia [Unknown]
  - Glycosylated haemoglobin increased [Recovered/Resolved]
